FAERS Safety Report 8997008 (Version 1)
Quarter: 2013Q1

REPORT INFORMATION
  Report Type: Spontaneous
  Country: US (occurrence: US)
  Receive Date: 20130104
  Receipt Date: 20130104
  Transmission Date: 20140127
  Serious: Yes (Other)
  Sender: FDA-Public Use
  Company Number: US-MYLANLABS-2012S1026441

PATIENT
  Age: 50 Year
  Sex: Female

DRUGS (3)
  1. AMITRIPTYLINE HYDROCHLORIDE [Suspect]
     Indication: DEPRESSION
     Route: 048
     Dates: start: 201207
  2. NORVASC [Concomitant]
     Indication: BLOOD PRESSURE
  3. ZANTAC [Concomitant]
     Indication: GASTROINTESTINAL DISORDER
     Dates: start: 201207

REACTIONS (3)
  - Sinusitis [Not Recovered/Not Resolved]
  - Dysgeusia [Not Recovered/Not Resolved]
  - Dry mouth [Not Recovered/Not Resolved]
